FAERS Safety Report 19494191 (Version 4)
Quarter: 2021Q3

REPORT INFORMATION
  Report Type: Report from Study
  Country: US (occurrence: US)
  Receive Date: 20210705
  Receipt Date: 20210809
  Transmission Date: 20211014
  Serious: No
  Sender: FDA-Public Use
  Company Number: US-UCBSA-2021005016

PATIENT
  Age: 70 Year
  Sex: Female
  Weight: 108.8 kg

DRUGS (2)
  1. ROTIGOTINE [Suspect]
     Active Substance: ROTIGOTINE
     Indication: RESTLESS LEGS SYNDROME
     Dosage: 2 MILLIGRAM, ONCE DAILY (QD)
     Dates: start: 202101, end: 202107
  2. ROTIGOTINE [Suspect]
     Active Substance: ROTIGOTINE
     Dosage: MORE THAN 24 HOURS TO EXTEND SUPPLY

REACTIONS (8)
  - Application site pruritus [Unknown]
  - Application site vesicles [Unknown]
  - Device adhesion issue [Unknown]
  - Vertigo [Not Recovered/Not Resolved]
  - Wrong technique in product usage process [Unknown]
  - Drug resistance [Unknown]
  - Dizziness [Not Recovered/Not Resolved]
  - Product use issue [Unknown]

NARRATIVE: CASE EVENT DATE: 202102
